FAERS Safety Report 13121502 (Version 1)
Quarter: 2017Q1

REPORT INFORMATION
  Report Type: Spontaneous
  Country: US (occurrence: US)
  Receive Date: 20170117
  Receipt Date: 20170117
  Transmission Date: 20170428
  Serious: Yes (Death)
  Sender: FDA-Public Use
  Company Number: US-SA-2017SA007243

PATIENT
  Sex: Male

DRUGS (1)
  1. GOLD BOND ULTIMATE SOFTENING LOTION [Suspect]
     Active Substance: COSMETICS
     Dosage: FORM-LOTION
     Route: 065

REACTIONS (3)
  - Expired product administered [None]
  - Death [Fatal]
  - Product use issue [Unknown]
